FAERS Safety Report 15710811 (Version 2)
Quarter: 2019Q2

REPORT INFORMATION
  Report Type: Spontaneous
  Country: US (occurrence: US)
  Receive Date: 20181211
  Receipt Date: 20190412
  Transmission Date: 20190711
  Serious: Yes (Other)
  Sender: FDA-Public Use
  Company Number: US-SA-2018SA334359

PATIENT
  Age: 47 Year
  Sex: Female
  Weight: 56.2 kg

DRUGS (12)
  1. TAMOXIFEN [Concomitant]
     Active Substance: TAMOXIFEN
     Dosage: UNK
  2. VITAMIN D [ERGOCALCIFEROL] [Concomitant]
     Active Substance: ERGOCALCIFEROL
     Dosage: UNK
     Dates: start: 2011, end: 2017
  3. MULTI VITAMIN [ASCORBIC ACID;COLECALCIFEROL;NICOTINAMIDE;PANTHENOL;PYR [Concomitant]
     Dosage: UNK
     Dates: start: 1967
  4. WELLBUTRIN [Concomitant]
     Active Substance: BUPROPION HYDROCHLORIDE
     Dosage: UNK
     Dates: start: 2011, end: 2017
  5. TRAZODONE [Concomitant]
     Active Substance: TRAZODONE HYDROCHLORIDE
     Dosage: UNK
     Dates: start: 2011, end: 2017
  6. TAXOTERE [Suspect]
     Active Substance: DOCETAXEL
     Dosage: 115 MG, Q3W
     Route: 042
     Dates: start: 20140703, end: 20140703
  7. HERCEPTIN [Concomitant]
     Active Substance: TRASTUZUMAB
  8. TYLENOL [Concomitant]
     Active Substance: ACETAMINOPHEN
     Dosage: UNK
     Dates: start: 1967
  9. PEPTO BISMOL [BISMUTH SUBSALICYLATE] [Concomitant]
     Dosage: UNK
     Dates: start: 1967
  10. TAXOTERE [Suspect]
     Active Substance: DOCETAXEL
     Indication: BREAST CANCER FEMALE
     Dosage: 115 MG, Q3W
     Route: 042
     Dates: start: 20140306, end: 20140306
  11. CARBOPLATIN. [Concomitant]
     Active Substance: CARBOPLATIN
  12. FLUOCINONIDE. [Concomitant]
     Active Substance: FLUOCINONIDE
     Dosage: UNK
     Dates: start: 2011, end: 2017

REACTIONS (6)
  - Pain [Unknown]
  - Psychological trauma [Unknown]
  - Emotional distress [Unknown]
  - Alopecia [Not Recovered/Not Resolved]
  - Anxiety [Unknown]
  - Impaired quality of life [Unknown]

NARRATIVE: CASE EVENT DATE: 20150125
